FAERS Safety Report 25589775 (Version 2)
Quarter: 2025Q3

REPORT INFORMATION
  Report Type: Report from Study
  Country: CN (occurrence: CN)
  Receive Date: 20250722
  Receipt Date: 20250903
  Transmission Date: 20251020
  Serious: Yes (Hospitalization, Other)
  Sender: RANBAXY
  Company Number: CN-SUN PHARMACEUTICAL INDUSTRIES LTD-2025R1-516439

PATIENT
  Age: 68 Year
  Sex: Female
  Weight: 68 kg

DRUGS (6)
  1. EBASTINE [Suspect]
     Active Substance: EBASTINE
     Indication: Dermatitis allergic
     Dosage: 20 MILLIGRAM, QD
     Route: 048
  2. LEVOCETIRIZINE [Suspect]
     Active Substance: LEVOCETIRIZINE
     Indication: Dermatitis allergic
     Dosage: 5 MILLIGRAM, QD
     Route: 048
     Dates: start: 20241108, end: 20241111
  3. LORATADINE [Suspect]
     Active Substance: LORATADINE
     Indication: Dermatitis allergic
     Dosage: 10 MILLIGRAM, QD
     Route: 048
     Dates: start: 20241208, end: 20241211
  4. METHYLPREDNISOLONE [Suspect]
     Active Substance: METHYLPREDNISOLONE
     Indication: Dermatitis allergic
     Dosage: 8 MILLIGRAM, QD
     Route: 048
     Dates: start: 20241111, end: 20241206
  5. PERTUZUMAB [Suspect]
     Active Substance: PERTUZUMAB
     Indication: Breast cancer
     Route: 042
     Dates: start: 20230811, end: 20241102
  6. TRASTUZUMAB [Suspect]
     Active Substance: TRASTUZUMAB
     Indication: Breast cancer
     Route: 042
     Dates: start: 20230811, end: 20241102

REACTIONS (1)
  - Gamma-glutamyltransferase increased [Unknown]

NARRATIVE: CASE EVENT DATE: 20241211
